FAERS Safety Report 7684717-1 (Version None)
Quarter: 2011Q3

REPORT INFORMATION
  Report Type: 
  Country: None (occurrence: None)
  Receive Date: 20110810
  Receipt Date: 20110729
  Transmission Date: 20111222
  Serious: Yes (Hospitalization, Other)
  Sender: FDA-Public Use
  Company Number: JPI-P-014849

PATIENT
  Age: 47 Year
  Sex: Female
  Weight: 63.5036 kg

DRUGS (10)
  1. ARMODAFINIL [Concomitant]
  2. BUPROPION HCL [Concomitant]
  3. ESTRADIOL TRANSDERMAL [Concomitant]
  4. PAROXETINE HCL [Concomitant]
  5. CELECOXIB [Concomitant]
  6. METHYLPHENIDATE HCL [Concomitant]
  7. XYREM [Suspect]
     Indication: NARCOLEPSY
     Dosage: (2 IN 1 D), ORAL 9 GM (4.5 GM, 2 IN 1 D), ORAL 9GM (4.5 GM, 2 IN 1 D), ORAL
     Route: 048
     Dates: end: 20110401
  8. XYREM [Suspect]
     Indication: NARCOLEPSY
     Dosage: (2 IN 1 D), ORAL 9 GM (4.5 GM, 2 IN 1 D), ORAL 9GM (4.5 GM, 2 IN 1 D), ORAL
     Route: 048
     Dates: start: 20110101
  9. XYREM [Suspect]
     Indication: NARCOLEPSY
     Dosage: (2 IN 1 D), ORAL 9 GM (4.5 GM, 2 IN 1 D), ORAL 9GM (4.5 GM, 2 IN 1 D), ORAL
     Route: 048
     Dates: start: 20100326
  10. GABAPENTIN [Concomitant]

REACTIONS (1)
  - CHOLELITHIASIS [None]
